FAERS Safety Report 5836537-8 (Version None)
Quarter: 2008Q3

REPORT INFORMATION
  Report Type: 
  Country: None (occurrence: None)
  Receive Date: 20080807
  Receipt Date: 20080725
  Transmission Date: 20090109
  Serious: Yes (Hospitalization)
  Sender: FDA-Public Use
  Company Number: JP-BAYER-200811549BYL

PATIENT
  Age: 76 Year
  Sex: Male
  Weight: 49 kg

DRUGS (5)
  1. ADALAT [Suspect]
     Indication: HYPERTENSION
     Dosage: TOTAL DAILY DOSE: 10 MG  UNIT DOSE: 10 MG
     Route: 048
  2. RENIVACE [Concomitant]
     Indication: HYPERTENSION
     Dosage: TOTAL DAILY DOSE: 10 MG  UNIT DOSE: 10 MG
     Route: 048
  3. CHINESE HERB [Concomitant]
     Indication: ARTHRALGIA
     Route: 048
  4. FERROMIA [Concomitant]
     Indication: DRUG USE FOR UNKNOWN INDICATION
     Route: 048
  5. LARILUDON [Concomitant]
     Indication: HYPERTENSION
     Route: 048

REACTIONS (4)
  - ALLERGY TO ARTHROPOD STING [None]
  - BLOOD PRESSURE DECREASED [None]
  - FACE OEDEMA [None]
  - OEDEMA PERIPHERAL [None]
